FAERS Safety Report 15999790 (Version 7)
Quarter: 2020Q2

REPORT INFORMATION
  Report Type: Spontaneous
  Country: US (occurrence: US)
  Receive Date: 20190225
  Receipt Date: 20200518
  Transmission Date: 20200713
  Serious: Yes (Other)
  Sender: FDA-Public Use
  Company Number: US-PFIZER INC-2019081414

PATIENT
  Age: 67 Year
  Sex: Male

DRUGS (2)
  1. XELJANZ [Suspect]
     Active Substance: TOFACITINIB CITRATE
     Dosage: 10 MG, UNK
     Dates: start: 20190205
  2. XELJANZ [Suspect]
     Active Substance: TOFACITINIB CITRATE
     Dosage: 5 MG, UNK
     Dates: start: 2019

REACTIONS (15)
  - Melanocytic naevus [Unknown]
  - Haemoglobin decreased [Unknown]
  - Sinus disorder [Not Recovered/Not Resolved]
  - Flatulence [Unknown]
  - Acne [Recovered/Resolved]
  - Abnormal faeces [Unknown]
  - Haematochezia [Recovered/Resolved]
  - Product dose omission [Unknown]
  - Acrochordon [Unknown]
  - Skin discolouration [Unknown]
  - Abdominal discomfort [Unknown]
  - Skin disorder [Unknown]
  - Upper-airway cough syndrome [Unknown]
  - Fatigue [Unknown]
  - Asthenia [Recovered/Resolved]

NARRATIVE: CASE EVENT DATE: 201902
